FAERS Safety Report 5103557-0 (Version None)
Quarter: 2006Q3

REPORT INFORMATION
  Report Type: 
  Country: None (occurrence: None)
  Receive Date: 20060913
  Receipt Date: 20060904
  Transmission Date: 20061208
  Serious: Yes (Hospitalization)
  Sender: FDA-Public Use
  Company Number: JP-NOVOPROD-256643

PATIENT
  Age: 64 Year
  Sex: Female
  Weight: 59 kg

DRUGS (3)
  1. INNOLET N CHU [Suspect]
     Indication: DIABETES MELLITUS NON-INSULIN-DEPENDENT
     Dosage: 900 IU, QD
     Route: 058
     Dates: start: 20050117, end: 20050117
  2. GLUCOBAY [Concomitant]
     Indication: DIABETES MELLITUS NON-INSULIN-DEPENDENT
     Dosage: 300 MG, QD
     Route: 048
     Dates: start: 20050114, end: 20050117
  3. LERITE [Concomitant]
     Dosage: 5 MG, QD
     Route: 048
     Dates: start: 20050114, end: 20050117

REACTIONS (3)
  - HYPOGLYCAEMIA [None]
  - SOMNOLENCE [None]
  - SUICIDE ATTEMPT [None]
